FAERS Safety Report 9150807 (Version 1)
Quarter: 2013Q1

REPORT INFORMATION
  Report Type: Spontaneous
  Country: US (occurrence: US)
  Receive Date: 20130308
  Receipt Date: 20130308
  Transmission Date: 20140127
  Serious: No
  Sender: FDA-Public Use
  Company Number: US-GLAXOSMITHKLINE-A0964133A

PATIENT
  Age: 55 Year
  Sex: Female

DRUGS (1)
  1. NICORETTE [Suspect]
     Indication: EX-TOBACCO USER
     Dates: start: 20111209, end: 20111209

REACTIONS (10)
  - Oral discomfort [Recovered/Resolved]
  - Throat irritation [Recovered/Resolved]
  - Oral mucosal blistering [Recovered/Resolved]
  - Gingival blister [Recovered/Resolved]
  - Tongue blistering [Recovered/Resolved]
  - Oropharyngeal blistering [Recovered/Resolved]
  - Thermal burn [Recovered/Resolved]
  - Urticaria [Recovered/Resolved]
  - Decreased appetite [Recovered/Resolved]
  - Gingival pain [Recovered/Resolved]
